FAERS Safety Report 9456375 (Version 1)
Quarter: 2013Q3

REPORT INFORMATION
  Report Type: Spontaneous
  Country: FR (occurrence: FR)
  Receive Date: 20130813
  Receipt Date: 20130813
  Transmission Date: 20140515
  Serious: Yes (Other)
  Sender: FDA-Public Use
  Company Number: FR-ACTAVIS-2013-14313

PATIENT
  Sex: Female

DRUGS (6)
  1. DOCETAXEL (UNKNOWN) [Suspect]
     Indication: INVASIVE DUCTAL BREAST CARCINOMA
     Dosage: 160 MG, UNKNOWN
     Route: 042
     Dates: start: 20130418, end: 20130418
  2. DOCETAXEL (UNKNOWN) [Suspect]
     Dosage: 240 UNK, UNK
     Route: 042
     Dates: start: 20130510, end: 20130510
  3. EPIRUBICIN HYDROCHLORIDE (UNKNOWN) [Suspect]
     Indication: INVASIVE DUCTAL BREAST CARCINOMA
     Dosage: UNK, UNKNOWN
     Route: 042
     Dates: start: 20130531, end: 20130712
  4. FLUOROURACILE [Suspect]
     Indication: INVASIVE DUCTAL BREAST CARCINOMA
     Dosage: UNK, UNKNOWN
     Route: 042
     Dates: start: 20130531, end: 20130712
  5. ENDOXAN /00021101/ [Suspect]
     Indication: INVASIVE DUCTAL BREAST CARCINOMA
     Dosage: UNK, UNKNOWN
     Route: 048
     Dates: start: 20130531, end: 20130712
  6. AMIODARONE [Concomitant]
     Dosage: UNK, UNKNOWN
     Route: 065

REACTIONS (1)
  - Onycholysis [Not Recovered/Not Resolved]
